FAERS Safety Report 4416364-9 (Version None)
Quarter: 2004Q3

REPORT INFORMATION
  Report Type: 
  Country: None (occurrence: None)
  Receive Date: 20040805
  Receipt Date: 20040730
  Transmission Date: 20050211
  Serious: Yes (Other)
  Sender: FDA-Public Use
  Company Number: US-GLAXOSMITHKLINE-A0520654A

PATIENT
  Age: 48 Year
  Sex: Female

DRUGS (4)
  1. ALBUTEROL [Suspect]
     Indication: DRUG USE FOR UNKNOWN INDICATION
     Route: 055
  2. ADVAIR DISKUS 100/50 [Suspect]
     Indication: DRUG USE FOR UNKNOWN INDICATION
     Route: 055
  3. SPIRIVA [Suspect]
  4. COMBIVENT [Suspect]

REACTIONS (7)
  - DIFFICULTY IN WALKING [None]
  - DYSPNOEA [None]
  - HYPERSENSITIVITY [None]
  - ILL-DEFINED DISORDER [None]
  - MALAISE [None]
  - PNEUMONIA [None]
  - WEIGHT INCREASED [None]
